FAERS Safety Report 4584837-4 (Version None)
Quarter: 2005Q1

REPORT INFORMATION
  Report Type: 
  Country: None (occurrence: None)
  Receive Date: 20050217
  Receipt Date: 20050209
  Transmission Date: 20050727
  Serious: Yes (Death)
  Sender: FDA-Public Use
  Company Number: 200510472JP

PATIENT
  Age: 60 Year
  Sex: Male

DRUGS (1)
  1. TAXOTERE [Suspect]

REACTIONS (1)
  - INTERSTITIAL LUNG DISEASE [None]
